FAERS Safety Report 10102178 (Version 1)
Quarter: 2014Q2

REPORT INFORMATION
  Report Type: Spontaneous
  Country: US (occurrence: None)
  Receive Date: 20140423
  Receipt Date: 20140423
  Transmission Date: 20141212
  Serious: Yes (Life-Threatening, Hospitalization, Other)
  Sender: FDA-Public Use
  Company Number: None

PATIENT
  Age: 70 Year
  Sex: Male
  Weight: 30.62 kg

DRUGS (2)
  1. MELPHALAN HCL [Suspect]
     Indication: NON-HODGKIN^S LYMPHOMA
     Route: 042
     Dates: start: 20140413
  2. MELPHALAN HCL [Suspect]
     Indication: TRANSPLANT
     Route: 042
     Dates: start: 20140413

REACTIONS (6)
  - Multi-organ failure [None]
  - Sepsis [None]
  - Colitis [None]
  - Renal failure acute [None]
  - Atrial fibrillation [None]
  - Respiratory failure [None]
